FAERS Safety Report 6152519-3 (Version None)
Quarter: 2009Q2

REPORT INFORMATION
  Report Type: 
  Country: None (occurrence: None)
  Receive Date: 20090409
  Receipt Date: 20090326
  Transmission Date: 20091009
  Serious: Yes (Other)
  Sender: FDA-Public Use
  Company Number: 2009S1004269

PATIENT
  Age: 17 Year
  Sex: Male

DRUGS (4)
  1. AMNESTEEM [Suspect]
     Indication: ACNE
     Dosage: 20 MG;DAILY;ORAL
     Route: 048
     Dates: start: 20081211, end: 20090201
  2. AMNESTEEM [Suspect]
     Indication: ACNE
     Dosage: 40 MG;DAILY;ORAL
     Route: 048
     Dates: start: 20090201, end: 20090220
  3. CLINDA [Concomitant]
  4. ACCUTANE [Suspect]
     Indication: ACNE
     Dosage: 10 MG;DAILY;ORAL
     Route: 048
     Dates: start: 20090101, end: 20090201

REACTIONS (1)
  - DEPRESSION SUICIDAL [None]
